FAERS Safety Report 12347005 (Version 1)
Quarter: 2016Q2

REPORT INFORMATION
  Report Type: Spontaneous
  Country: None (occurrence: None)
  Receive Date: 20160506
  Receipt Date: 20160506
  Transmission Date: 20160815
  Serious: Yes (Other)
  Sender: FDA-Public Use
  Company Number: None

PATIENT
  Age: 16 Year
  Sex: Male
  Weight: 89.81 kg

DRUGS (1)
  1. GUANFACINE. [Suspect]
     Active Substance: GUANFACINE
     Indication: AUTISM SPECTRUM DISORDER
     Route: 048
     Dates: start: 201503

REACTIONS (5)
  - Aggression [None]
  - Drug intolerance [None]
  - Product substitution issue [None]
  - Retching [None]
  - Vomiting [None]

NARRATIVE: CASE EVENT DATE: 201503
